FAERS Safety Report 6369951-5 (Version None)
Quarter: 2009Q3

REPORT INFORMATION
  Report Type: 
  Country: None (occurrence: None)
  Receive Date: 20090923
  Receipt Date: 20090123
  Transmission Date: 20100115
  Serious: No
  Sender: FDA-Public Use
  Company Number: US-ASTRAZENECA-2004UW19784

PATIENT
  Age: 57 Year
  Sex: Female
  Weight: 99.8 kg

DRUGS (8)
  1. SEROQUEL [Suspect]
     Indication: SLEEP DISORDER
     Route: 048
     Dates: start: 20040101
  2. EFFEXOR XR [Concomitant]
  3. TRILEPTAL [Concomitant]
  4. XANAX [Concomitant]
  5. PROVENTIL-HFA [Concomitant]
  6. SEREVENT DISK INHALER [Concomitant]
     Route: 055
  7. PULMICORT [Concomitant]
     Route: 055
  8. PREDNISONE TAB [Concomitant]

REACTIONS (4)
  - DRUG DEPENDENCE [None]
  - FATIGUE [None]
  - FEELING ABNORMAL [None]
  - SOMNOLENCE [None]
